FAERS Safety Report 14392738 (Version 1)
Quarter: 2018Q1

REPORT INFORMATION
  Report Type: Spontaneous
  Country: US (occurrence: US)
  Receive Date: 20180112
  Receipt Date: 20180112
  Transmission Date: 20180509
  Serious: No
  Sender: FDA-Public Use
  Company Number: None

PATIENT
  Age: 33 Year
  Weight: 74.25 kg

DRUGS (1)
  1. ORTHO TRI CYCLEN LO [Suspect]
     Active Substance: ETHINYL ESTRADIOL\NORGESTIMATE
     Indication: CONTRACEPTION
     Route: 048
     Dates: start: 20160301, end: 20160501

REACTIONS (5)
  - Pregnancy [None]
  - Nausea [None]
  - Therapy cessation [None]
  - Abortion spontaneous [None]
  - Product substitution issue [None]

NARRATIVE: CASE EVENT DATE: 20160608
